FAERS Safety Report 21637570 (Version 3)
Quarter: 2023Q1

REPORT INFORMATION
  Report Type: Report from Study
  Country: US (occurrence: US)
  Receive Date: 20221124
  Receipt Date: 20230125
  Transmission Date: 20230418
  Serious: Yes (Hospitalization, Other)
  Sender: FDA-Public Use
  Company Number: US-TAKEDA-2022TUS086604

PATIENT
  Age: 64 Year
  Sex: Female

DRUGS (53)
  1. TEDUGLUTIDE [Suspect]
     Active Substance: TEDUGLUTIDE
     Indication: Short-bowel syndrome
     Dosage: 2 MILLIGRAM, QD
     Route: 042
     Dates: start: 20130404, end: 20171206
  2. TEDUGLUTIDE [Suspect]
     Active Substance: TEDUGLUTIDE
     Indication: Short-bowel syndrome
     Dosage: 2 MILLIGRAM, QD
     Route: 042
     Dates: start: 20130404, end: 20171206
  3. TEDUGLUTIDE [Suspect]
     Active Substance: TEDUGLUTIDE
     Indication: Short-bowel syndrome
     Dosage: 2 MILLIGRAM, QD
     Route: 042
     Dates: start: 20130404, end: 20171206
  4. TEDUGLUTIDE [Suspect]
     Active Substance: TEDUGLUTIDE
     Indication: Short-bowel syndrome
     Dosage: 2 MILLIGRAM, QD
     Route: 042
     Dates: start: 20130404, end: 20171206
  5. TEDUGLUTIDE [Suspect]
     Active Substance: TEDUGLUTIDE
     Dosage: 2 MILLIGRAM, 4/WEEK
     Route: 042
     Dates: start: 20180227
  6. TEDUGLUTIDE [Suspect]
     Active Substance: TEDUGLUTIDE
     Dosage: 2 MILLIGRAM, 4/WEEK
     Route: 042
     Dates: start: 20180227
  7. TEDUGLUTIDE [Suspect]
     Active Substance: TEDUGLUTIDE
     Dosage: 2 MILLIGRAM, 4/WEEK
     Route: 042
     Dates: start: 20180227
  8. TEDUGLUTIDE [Suspect]
     Active Substance: TEDUGLUTIDE
     Dosage: 2 MILLIGRAM, 4/WEEK
     Route: 042
     Dates: start: 20180227
  9. ZOFRAN [Concomitant]
     Active Substance: ONDANSETRON HYDROCHLORIDE
     Indication: Nausea
     Dosage: 4 MILLIGRAM
     Route: 042
     Dates: start: 20220802, end: 20220802
  10. ZOFRAN [Concomitant]
     Active Substance: ONDANSETRON HYDROCHLORIDE
     Dosage: 4 MILLIGRAM
     Route: 042
     Dates: start: 20220709, end: 20220713
  11. MECLIZINE [Concomitant]
     Active Substance: MECLIZINE HYDROCHLORIDE
     Indication: Nausea
     Dosage: 50 MILLIGRAM, SINGLE
     Route: 048
     Dates: start: 20220802, end: 20220802
  12. FORTEO [Concomitant]
     Active Substance: TERIPARATIDE
     Indication: Osteoporosis
     Dosage: 20 MICROGRAM, QD
     Route: 058
     Dates: start: 20220709, end: 20221103
  13. FORTEO [Concomitant]
     Active Substance: TERIPARATIDE
     Dosage: 600 MICROGRAM, QD
     Route: 058
     Dates: start: 20170823, end: 20220709
  14. AUGMENTIN [Concomitant]
     Active Substance: AMOXICILLIN\CLAVULANATE POTASSIUM
     Indication: Gastroenteritis
     Dosage: 500 MILLIGRAM
     Route: 048
     Dates: start: 20220709, end: 20220714
  15. CARVEDILOL [Concomitant]
     Active Substance: CARVEDILOL
     Indication: Cardiomyopathy
     Dosage: 6.25 MILLIGRAM, QD
     Route: 048
     Dates: start: 20171010, end: 20221104
  16. CARVEDILOL [Concomitant]
     Active Substance: CARVEDILOL
     Dosage: 6.25 MILLIGRAM, BID
     Route: 048
     Dates: start: 20221104
  17. DEXTROSE [Concomitant]
     Active Substance: DEXTROSE
     Indication: Dehydration
     Dosage: 12.5 GRAM
     Route: 042
     Dates: start: 20221104
  18. FAMOTIDINE [Concomitant]
     Active Substance: FAMOTIDINE
     Indication: Gastrooesophageal reflux disease
     Dosage: 20 MILLIGRAM
     Route: 048
     Dates: start: 20221104
  19. FLEXERIL [Concomitant]
     Active Substance: CYCLOBENZAPRINE HYDROCHLORIDE
     Indication: Pain
     Dosage: 10 MILLIGRAM
     Route: 048
     Dates: start: 20221104
  20. GABAPENTIN [Concomitant]
     Active Substance: GABAPENTIN
     Indication: Pain
     Dosage: 100 MILLIGRAM, QD
     Route: 048
     Dates: start: 20221104
  21. GLUCAGON [Concomitant]
     Active Substance: GLUCAGON
     Indication: Hypoglycaemia
     Dosage: 1 MILLIGRAM
     Route: 058
     Dates: start: 20221104
  22. HUMALOG [Concomitant]
     Active Substance: INSULIN LISPRO
     Indication: Hyperglycaemia
     Dosage: UNK
     Route: 058
     Dates: start: 20221104
  23. HYDRALAZINE [Concomitant]
     Active Substance: HYDRALAZINE HYDROCHLORIDE
     Indication: Hypertension
     Dosage: 10 MILLIGRAM
     Route: 042
     Dates: start: 20221104
  24. HYDROXYCHLOROQUINE [Concomitant]
     Active Substance: HYDROXYCHLOROQUINE
     Indication: Autoimmune disorder
     Dosage: 200 MILLIGRAM, QD
     Route: 048
     Dates: start: 20211117
  25. ISOSORBIDE DINITRATE [Concomitant]
     Active Substance: ISOSORBIDE DINITRATE
     Indication: Coronary artery disease
     Dosage: 5 MILLIGRAM, BID
     Route: 048
     Dates: start: 20221104
  26. LIDOCAINE [Concomitant]
     Active Substance: LIDOCAINE
     Indication: Hypoaesthesia
     Dosage: 5 UNK
     Route: 062
     Dates: start: 20221104, end: 20221104
  27. LOPERAMIDE [Concomitant]
     Active Substance: LOPERAMIDE
     Indication: Diarrhoea
     Dosage: 8 MILLIGRAM
     Route: 048
     Dates: start: 20221104
  28. LOPERAMIDE [Concomitant]
     Active Substance: LOPERAMIDE
     Indication: Ileostomy
     Dosage: 30 MILLILITER, QID
     Route: 048
     Dates: start: 20151230, end: 20220709
  29. OCTREOTIDE [Concomitant]
     Active Substance: OCTREOTIDE
     Indication: Short-bowel syndrome
     Dosage: 25 MICROGRAM, TID
     Route: 058
     Dates: start: 20221104
  30. OCTREOTIDE [Concomitant]
     Active Substance: OCTREOTIDE
     Dosage: 50 MICROGRAM, QID
     Route: 058
     Dates: start: 20220711, end: 20221104
  31. OCTREOTIDE [Concomitant]
     Active Substance: OCTREOTIDE
     Dosage: 15 MILLILITER, QID
     Route: 042
     Dates: start: 20130404, end: 20220709
  32. VASCEPA [Concomitant]
     Active Substance: ICOSAPENT ETHYL
     Indication: Hyperlipidaemia
     Dosage: 4 GRAM, BID
     Route: 048
     Dates: start: 20221104
  33. SELENIUM [Concomitant]
     Active Substance: SELENIUM
     Indication: Mineral deficiency
     Dosage: 200 MILLIGRAM, QD
     Route: 048
     Dates: start: 20100908, end: 2019
  34. SPIRONOLACTONE [Concomitant]
     Active Substance: SPIRONOLACTONE
     Indication: Cardiomyopathy
     Dosage: 25 MILLIGRAM, QD
     Route: 048
     Dates: start: 20140930, end: 2020
  35. TRADJENTA [Concomitant]
     Active Substance: LINAGLIPTIN
     Indication: Diabetes mellitus
     Dosage: 5 MILLIGRAM, QD
     Route: 048
     Dates: start: 20201119
  36. Tylenol cold [Concomitant]
     Indication: Abdominal pain
     Dosage: 650 MILLIGRAM
     Route: 048
     Dates: start: 20220709, end: 20220713
  37. TUMS [Concomitant]
     Active Substance: CALCIUM CARBONATE
     Indication: Nausea
     Dosage: 1000 MILLIGRAM
     Route: 048
     Dates: start: 20220709, end: 20220713
  38. SODIUM CHLORIDE [Concomitant]
     Active Substance: SODIUM CHLORIDE
     Indication: Dehydration
     Dosage: 1000 MILLILITER
     Route: 042
     Dates: start: 20220709, end: 20220713
  39. HYDROCODONE [Concomitant]
     Active Substance: HYDROCODONE
     Indication: Pain
     Dosage: 5 MILLIGRAM
     Route: 048
     Dates: start: 20220709, end: 20220713
  40. ACETAMINOPHEN [Concomitant]
     Active Substance: ACETAMINOPHEN
     Indication: Pain
     Dosage: 325 MILLIGRAM
     Route: 048
     Dates: start: 20220709, end: 20220713
  41. NESINA [Concomitant]
     Active Substance: ALOGLIPTIN BENZOATE
     Indication: Diabetes mellitus
     Dosage: 6.25 MILLIGRAM, QD
     Route: 048
     Dates: start: 20220709, end: 20221104
  42. ASCORBIC ACID [Concomitant]
     Active Substance: ASCORBIC ACID
     Indication: Hypovitaminosis
     Dosage: 100 MILLIGRAM, QD
     Route: 048
     Dates: start: 20100702, end: 20221104
  43. VITAMIN B12 [Concomitant]
     Active Substance: CYANOCOBALAMIN
     Indication: Hypovitaminosis
     Dosage: 1000 MICROGRAM
     Route: 030
     Dates: start: 20160909, end: 20221104
  44. DAPAGLIFLOZIN [Concomitant]
     Active Substance: DAPAGLIFLOZIN
     Indication: Diabetes mellitus
     Dosage: 10 MILLIGRAM, QD
     Route: 048
     Dates: start: 20170830, end: 20220709
  45. DIGOXIN [Concomitant]
     Active Substance: DIGOXIN
     Indication: Cardiomyopathy
     Dosage: 125 MICROGRAM, QD
     Route: 048
     Dates: start: 20101015
  46. DIGOXIN [Concomitant]
     Active Substance: DIGOXIN
     Indication: Cardiac failure chronic
  47. ERGOCALCIFEROL [Concomitant]
     Active Substance: ERGOCALCIFEROL
     Indication: Hypovitaminosis
     Dosage: 50000 INTERNATIONAL UNIT, 1/WEEK
     Route: 048
     Dates: start: 20160919, end: 20221104
  48. FENOFIBRATE [Concomitant]
     Active Substance: FENOFIBRATE
     Indication: Hyperlipidaemia
     Dosage: 160 MILLIGRAM, QD
     Route: 048
     Dates: start: 20110329, end: 20220802
  49. LISINOPRIL [Concomitant]
     Active Substance: LISINOPRIL
     Indication: Cardiomyopathy
     Dosage: 2.50 MILLIGRAM, QD
     Route: 048
     Dates: start: 20150402, end: 20221104
  50. MAGNESIUM SULFATE [Concomitant]
     Active Substance: MAGNESIUM SULFATE
     Indication: Hypomagnesaemia
     Dosage: 1 GRAM, QOD
     Route: 042
     Dates: start: 20130413
  51. OMEGA-3 FATTY ACIDS [Concomitant]
     Active Substance: OMEGA-3 FATTY ACIDS
     Indication: Fatty acid deficiency
     Dosage: 1 GRAM, QD
     Route: 048
     Dates: start: 20100702, end: 20221104
  52. PAREGORIC [Concomitant]
     Active Substance: MORPHINE
     Indication: Ileostomy
     Dosage: 2 MILLIGRAM
     Route: 048
     Dates: start: 20170830, end: 2017
  53. CREON [Concomitant]
     Active Substance: PANCRELIPASE AMYLASE\PANCRELIPASE LIPASE\PANCRELIPASE PROTEASE
     Indication: Malabsorption
     Dosage: 4800 INTERNATIONAL UNIT
     Route: 048
     Dates: start: 20171101, end: 2019

REACTIONS (7)
  - Acute kidney injury [Not Recovered/Not Resolved]
  - Hypomagnesaemia [Not Recovered/Not Resolved]
  - Hypokalaemia [Not Recovered/Not Resolved]
  - Cardiac failure [Not Recovered/Not Resolved]
  - Dyslipidaemia [Not Recovered/Not Resolved]
  - Cardiomyopathy [Not Recovered/Not Resolved]
  - Toxicity to various agents [Not Recovered/Not Resolved]

NARRATIVE: CASE EVENT DATE: 20221104
